FAERS Safety Report 17282192 (Version 2)
Quarter: 2020Q1

REPORT INFORMATION
  Report Type: Report from Study
  Country: CA (occurrence: CA)
  Receive Date: 20200117
  Receipt Date: 20200304
  Transmission Date: 20200409
  Serious: Yes (Other)
  Sender: FDA-Public Use
  Company Number: CA-ROCHE-2522555

PATIENT
  Age: 55 Year
  Sex: Female

DRUGS (10)
  1. CLARITIN [Concomitant]
     Active Substance: LORATADINE
     Indication: URTICARIA
     Dosage: 2 DF, BID
     Route: 048
     Dates: start: 20191003
  2. ATARAX [Concomitant]
     Active Substance: HYDROXYZINE HYDROCHLORIDE
     Indication: URTICARIA
     Dosage: 1 DF, BID
     Route: 048
  3. ZANTAC [Concomitant]
     Active Substance: RANITIDINE HYDROCHLORIDE
     Indication: URTICARIA
     Dosage: 1 DF, QD
     Route: 048
  4. BENADRYL [Concomitant]
     Active Substance: DIPHENHYDRAMINE HYDROCHLORIDE
     Indication: URTICARIA
     Dosage: 2 DF, QD
     Route: 048
     Dates: start: 201904
  5. ATIVAN [Concomitant]
     Active Substance: LORAZEPAM
     Indication: ANXIETY
     Dosage: 1 DF, PRN
     Route: 048
  6. XOLAIR [Suspect]
     Active Substance: OMALIZUMAB
     Indication: CHRONIC SPONTANEOUS URTICARIA
     Route: 058
     Dates: start: 20191209
  7. SINEQUAN [Concomitant]
     Active Substance: DOXEPIN HYDROCHLORIDE
     Indication: URTICARIA
     Dosage: 3 DF, QD
     Route: 048
  8. XOLAIR [Suspect]
     Active Substance: OMALIZUMAB
     Route: 058
     Dates: start: 20200106
  9. BILASTINE [Concomitant]
     Active Substance: BILASTINE
     Indication: URTICARIA
     Dosage: 2 DF, BID
     Route: 048
     Dates: start: 20191003
  10. BILASTINE [Concomitant]
     Active Substance: BILASTINE
     Dosage: (1 TABLET IN THE MORNING AND 2 TABLETS AT BEDTIME FOR 1 WEEK AND THEN 1 TABLET IN THE MORNING AND 1
     Route: 048

REACTIONS (6)
  - Blood pressure increased [Not Recovered/Not Resolved]
  - Skin plaque [Recovering/Resolving]
  - Injection site hypoaesthesia [Recovered/Resolved]
  - Hypersensitivity [Unknown]
  - Dizziness [Recovered/Resolved]
  - Urticaria [Recovered/Resolved]

NARRATIVE: CASE EVENT DATE: 20191209
